FAERS Safety Report 4505311-7 (Version None)
Quarter: 2004Q4

REPORT INFORMATION
  Report Type: 
  Country: None (occurrence: None)
  Receive Date: 20041015
  Receipt Date: 20040517
  Transmission Date: 20050328
  Serious: Yes (Other)
  Sender: FDA-Public Use
  Company Number: 2004032846

PATIENT
  Age: 81 Year
  Sex: Female

DRUGS (1)
  1. NEURONTIN [Suspect]
     Indication: ILL-DEFINED DISORDER
     Dosage: (100 MG, UNKNOWN)

REACTIONS (5)
  - BEDRIDDEN [None]
  - CEREBROVASCULAR ACCIDENT [None]
  - DIZZINESS [None]
  - MUSCLE CRAMP [None]
  - MYALGIA [None]
